FAERS Safety Report 24835696 (Version 1)
Quarter: 2025Q1

REPORT INFORMATION
  Report Type: Spontaneous
  Country: US (occurrence: US)
  Receive Date: 20250113
  Receipt Date: 20250113
  Transmission Date: 20250408
  Serious: No
  Sender: TRIS PHARMA, INC.
  Company Number: US-TRIS PHARMA, INC.-25US011807

PATIENT

DRUGS (1)
  1. ONYDA XR [Suspect]
     Active Substance: CLONIDINE HYDROCHLORIDE
     Indication: Attention deficit hyperactivity disorder
     Dosage: 0.25 MILLILITRE, QD
     Route: 048
     Dates: start: 20241120

REACTIONS (6)
  - COVID-19 [Unknown]
  - Abdominal discomfort [Not Recovered/Not Resolved]
  - Flatulence [Not Recovered/Not Resolved]
  - Abdominal distension [Not Recovered/Not Resolved]
  - Off label use [Unknown]
  - Abdominal pain upper [Not Recovered/Not Resolved]

NARRATIVE: CASE EVENT DATE: 20241120
